FAERS Safety Report 5748817-5 (Version None)
Quarter: 2008Q2

REPORT INFORMATION
  Report Type: 
  Country: None (occurrence: None)
  Receive Date: 20080522
  Receipt Date: 20080505
  Transmission Date: 20081010
  Serious: Yes (Death)
  Sender: FDA-Public Use
  Company Number: 2008AL003383

PATIENT
  Age: 100 Year
  Sex: Female

DRUGS (2)
  1. DIGOXIN [Suspect]
     Indication: CARDIAC DISORDER
     Dosage: DAILY PO
     Route: 048
     Dates: start: 20080301
  2. PRILOSEC [Concomitant]

REACTIONS (7)
  - CARDIAC FAILURE CONGESTIVE [None]
  - CARDIAC PACEMAKER MALFUNCTION [None]
  - GENERAL PHYSICAL HEALTH DETERIORATION [None]
  - MENTAL DISORDER [None]
  - PNEUMONIA [None]
  - RENAL FAILURE [None]
  - THERAPEUTIC AGENT TOXICITY [None]
